FAERS Safety Report 22254334 (Version 2)
Quarter: 2023Q2

REPORT INFORMATION
  Report Type: Report from Study
  Country: NL (occurrence: NL)
  Receive Date: 20230426
  Receipt Date: 20230501
  Transmission Date: 20230722
  Serious: Yes (Hospitalization, Other)
  Sender: FDA-Public Use
  Company Number: NL-ASTELLAS-2023EU000898

PATIENT
  Age: 49 Year
  Sex: Male

DRUGS (17)
  1. TACROLIMUS [Suspect]
     Active Substance: TACROLIMUS
     Indication: Prophylaxis against graft versus host disease
     Route: 065
  2. TACROLIMUS [Suspect]
     Active Substance: TACROLIMUS
     Indication: Allogenic stem cell transplantation
     Dosage: 0.5 MG, TWICE DAILY
     Route: 065
  3. AMPHOTERICIN B [Concomitant]
     Active Substance: AMPHOTERICIN B
     Indication: Visceral leishmaniasis
     Route: 065
  4. AMPHOTERICIN B [Concomitant]
     Active Substance: AMPHOTERICIN B
     Route: 065
  5. AMPHOTERICIN B [Concomitant]
     Active Substance: AMPHOTERICIN B
     Route: 065
  6. CYCLOSPORINE [Concomitant]
     Active Substance: CYCLOSPORINE
     Indication: Prophylaxis against graft versus host disease
     Dosage: UNK UNK, UNKNOWN FREQ.
     Route: 065
  7. CYCLOSPORINE [Concomitant]
     Active Substance: CYCLOSPORINE
     Indication: Allogenic stem cell transplantation
  8. MYCOPHENOLATE MOFETIL [Concomitant]
     Active Substance: MYCOPHENOLATE MOFETIL
     Indication: Prophylaxis against graft versus host disease
     Dosage: UNK UNK, UNKNOWN FREQ.
     Route: 065
  9. MYCOPHENOLATE MOFETIL [Concomitant]
     Active Substance: MYCOPHENOLATE MOFETIL
     Indication: Allogenic stem cell transplantation
  10. PREDNISOLONE [Concomitant]
     Active Substance: PREDNISOLONE
     Indication: Prophylaxis against graft versus host disease
     Route: 065
  11. PREDNISOLONE [Concomitant]
     Active Substance: PREDNISOLONE
     Indication: Allogenic stem cell transplantation
  12. RUXOLITINIB [Concomitant]
     Active Substance: RUXOLITINIB
     Indication: Myelofibrosis
     Dosage: UNK UNK, UNKNOWN FREQ.
     Route: 065
  13. INTERFERON ALFA-1A [Concomitant]
     Active Substance: INTERFERON ALFA-1A
     Indication: Myelofibrosis
     Dosage: UNK UNK, UNKNOWN FREQ.
     Route: 065
  14. BUSULFAN [Concomitant]
     Active Substance: BUSULFAN
     Indication: Myelofibrosis
     Dosage: UNK UNK, UNKNOWN FREQ.
     Route: 065
  15. FLUDARABINE [Concomitant]
     Active Substance: FLUDARABINE PHOSPHATE
     Indication: Myelofibrosis
     Dosage: UNK UNK, UNKNOWN FREQ.
     Route: 065
  16. THYMOCYTE IMMUNE GLOBULIN NOS [Concomitant]
     Active Substance: THYMOCYTE IMMUNE GLOBULIN NOS
     Indication: Myelofibrosis
     Dosage: UNK UNK, UNKNOWN FREQ.
     Route: 065
  17. MILTEFOSINE [Concomitant]
     Active Substance: MILTEFOSINE
     Indication: Product used for unknown indication
     Route: 065

REACTIONS (4)
  - Visceral leishmaniasis [Unknown]
  - Infection [Unknown]
  - Glomerular filtration rate decreased [Unknown]
  - Off label use [Unknown]
